FAERS Safety Report 15331967 (Version 6)
Quarter: 2019Q3

REPORT INFORMATION
  Report Type: Spontaneous
  Country: JP (occurrence: JP)
  Receive Date: 20180829
  Receipt Date: 20190905
  Transmission Date: 20191004
  Serious: Yes (Hospitalization, Other)
  Sender: FDA-Public Use
  Company Number: PHHY2018JP079049

PATIENT
  Age: 35 Year
  Sex: Female

DRUGS (4)
  1. AZANIN [Suspect]
     Active Substance: AZATHIOPRINE
     Indication: MULTIPLE SCLEROSIS RELAPSE
     Dosage: 50 MG
     Route: 065
  2. DIMETHYL FUMARATE [Concomitant]
     Active Substance: DIMETHYL FUMARATE
     Indication: MULTIPLE SCLEROSIS RELAPSE
     Route: 065
  3. NATALIZUMABUM [Concomitant]
     Indication: MULTIPLE SCLEROSIS RELAPSE
     Route: 065
  4. IMUSERA [Suspect]
     Active Substance: FINGOLIMOD HYDROCHLORIDE
     Indication: MULTIPLE SCLEROSIS
     Dosage: 0.5 MG
     Route: 048

REACTIONS (2)
  - Lymphopenia [Recovered/Resolved]
  - Rebound effect [Recovered/Resolved]
